FAERS Safety Report 4351724-6 (Version None)
Quarter: 2004Q2

REPORT INFORMATION
  Report Type: 
  Country: None (occurrence: None)
  Receive Date: 20040429
  Receipt Date: 20040317
  Transmission Date: 20050107
  Serious: No
  Sender: FDA-Public Use
  Company Number: 2004-114028-NL

PATIENT
  Age: 36 Year
  Sex: Female
  Weight: 121.8 kg

DRUGS (5)
  1. NUVARING [Suspect]
     Indication: CONTRACEPTION
     Dosage: DF DAILY VAGINAL
     Route: 067
     Dates: start: 20030901
  2. MAXAIR [Concomitant]
  3. ADVAIR DISKUS 100/50 [Concomitant]
  4. MULTI-VITAMINS [Concomitant]
  5. ACIPHEX [Concomitant]

REACTIONS (1)
  - METRORRHAGIA [None]
